FAERS Safety Report 4438308-6 (Version None)
Quarter: 2004Q3

REPORT INFORMATION
  Report Type: 
  Country: None (occurrence: None)
  Receive Date: 20040831
  Receipt Date: 20040714
  Transmission Date: 20050211
  Serious: No
  Sender: FDA-Public Use
  Company Number: US-GLAXOSMITHKLINE-A0518210A

PATIENT
  Age: 48 Year
  Sex: Female

DRUGS (6)
  1. WELLBUTRIN XL [Suspect]
     Indication: DEPRESSION
     Dosage: 300MG PER DAY
     Route: 048
     Dates: start: 20040601
  2. WELLBUTRIN SR [Suspect]
     Indication: DEPRESSION
     Route: 048
  3. IRON SUPPLEMENT [Concomitant]
  4. CALCIUM SUPPLEMENT [Concomitant]
  5. YASMIN [Concomitant]
  6. VITAMIN D SUPPLEMENT [Concomitant]

REACTIONS (4)
  - ACCIDENTAL OVERDOSE [None]
  - FEELING ABNORMAL [None]
  - NAUSEA [None]
  - TINNITUS [None]
